FAERS Safety Report 6647394-4 (Version None)
Quarter: 2010Q1

REPORT INFORMATION
  Report Type: 
  Country: None (occurrence: None)
  Receive Date: 20100323
  Receipt Date: 20100316
  Transmission Date: 20100710
  Serious: Yes (Death, Hospitalization)
  Sender: FDA-Public Use
  Company Number: FR-BAYER-201019476GPV

PATIENT
  Age: 80 Year
  Sex: Female

DRUGS (5)
  1. CIPROFLOXACIN HCL [Suspect]
     Indication: SEPTIC SHOCK
     Route: 042
     Dates: start: 20091231, end: 20100101
  2. PREVISCAN [Suspect]
     Indication: DRUG USE FOR UNKNOWN INDICATION
     Route: 048
     Dates: end: 20100102
  3. FURADANTINE [Suspect]
     Indication: DRUG USE FOR UNKNOWN INDICATION
     Route: 048
     Dates: start: 20091219, end: 20091230
  4. CALCIPARINE [Concomitant]
  5. KASKADIL [Concomitant]

REACTIONS (2)
  - INTERNATIONAL NORMALISED RATIO INCREASED [None]
  - MULTI-ORGAN FAILURE [None]
